FAERS Safety Report 18506934 (Version 1)
Quarter: 2020Q4

REPORT INFORMATION
  Report Type: Spontaneous
  Country: US (occurrence: US)
  Receive Date: 20201114
  Receipt Date: 20201114
  Transmission Date: 20210114
  Serious: Yes (Other)
  Sender: FDA-Public Use
  Company Number: None

PATIENT
  Age: 11 Year
  Sex: Male
  Weight: 29.25 kg

DRUGS (8)
  1. HYDROCORTISONE 1% [Suspect]
     Active Substance: HYDROCORTISONE
  2. VITAMIN C [Concomitant]
     Active Substance: ASCORBIC ACID
  3. NEOSPORIN ECZEMA ESSENTIALS ANTI ITCH [Suspect]
     Active Substance: HYDROCORTISONE
     Indication: ECZEMA
     Dosage: ?          OTHER FREQUENCY:1-2 X PER WEEK;?
     Route: 061
  4. TRIAMCINOLONE ACETATE [Suspect]
     Active Substance: TRIAMCINOLONE ACETONIDE
  5. DECADRON [Suspect]
     Active Substance: DEXAMETHASONE
  6. PREDNISONE. [Suspect]
     Active Substance: PREDNISONE
  7. VITAMIN D [Concomitant]
     Active Substance: VITAMIN D NOS
  8. VASELINE PURE [Concomitant]
     Active Substance: PETROLATUM

REACTIONS (3)
  - Rash [None]
  - Steroid withdrawal syndrome [None]
  - Condition aggravated [None]

NARRATIVE: CASE EVENT DATE: 20190310
